FAERS Safety Report 13249963 (Version 1)
Quarter: 2017Q1

REPORT INFORMATION
  Report Type: Spontaneous
  Country: US (occurrence: US)
  Receive Date: 20170218
  Receipt Date: 20170218
  Transmission Date: 20170428
  Serious: No
  Sender: FDA-Public Use
  Company Number: US-ALLERGAN-1664858US

PATIENT
  Sex: Male
  Weight: 61.22 kg

DRUGS (2)
  1. BION TEARS [Concomitant]
     Active Substance: DEXTRAN 70\HYPROMELLOSE 2910 (4000 MPA.S)
     Indication: DRY EYE
     Dosage: 1 VIAL 5 TO 6 TIMES DAILY
     Route: 047
  2. RESTASIS [Suspect]
     Active Substance: CYCLOSPORINE
     Indication: DRY EYE
     Dosage: 2 GTT, BID
     Route: 047
     Dates: start: 2003, end: 2010

REACTIONS (2)
  - Drug dose omission [Unknown]
  - Dry eye [Not Recovered/Not Resolved]
